FAERS Safety Report 12996066 (Version 7)
Quarter: 2017Q1

REPORT INFORMATION
  Report Type: Spontaneous
  Country: CN (occurrence: CN)
  Receive Date: 20161202
  Receipt Date: 20170104
  Transmission Date: 20170428
  Serious: Yes (Death, Hospitalization, Other)
  Sender: FDA-Public Use
  Company Number: CN-ABBVIE-16P-035-1793653-00

PATIENT
  Age: 57 Year
  Sex: Female

DRUGS (4)
  1. ZEMPLAR [Suspect]
     Active Substance: PARICALCITOL
     Route: 050
     Dates: start: 201610
  2. CINACALCET [Concomitant]
     Active Substance: CINACALCET
     Indication: PRODUCT USED FOR UNKNOWN INDICATION
  3. ZEMPLAR [Suspect]
     Active Substance: PARICALCITOL
     Indication: HYPERPARATHYROIDISM SECONDARY
     Route: 050
     Dates: start: 201607, end: 201610
  4. LANTHANUM CARBONATE. [Concomitant]
     Active Substance: LANTHANUM CARBONATE
     Indication: PRODUCT USED FOR UNKNOWN INDICATION

REACTIONS (8)
  - Shock [Unknown]
  - Chronic kidney disease [Fatal]
  - Azotaemia [Fatal]
  - Joint swelling [Not Recovered/Not Resolved]
  - Hyperkalaemia [Fatal]
  - Blood lactic acid increased [Unknown]
  - Coma [Unknown]
  - Rhabdomyolysis [Unknown]

NARRATIVE: CASE EVENT DATE: 20161118
